FAERS Safety Report 6379270-9 (Version None)
Quarter: 2009Q3

REPORT INFORMATION
  Report Type: 
  Country: None (occurrence: None)
  Receive Date: 20090928
  Receipt Date: 20090919
  Transmission Date: 20100115
  Serious: Yes (Other)
  Sender: FDA-Public Use
  Company Number: US-PFIZER INC-2009250932

PATIENT
  Sex: Female
  Weight: 78 kg

DRUGS (2)
  1. NORVASC [Suspect]
     Indication: HYPERTENSION
     Dosage: 2.5 MG, 1X/DAY, EVERYDAY
     Dates: start: 19960101
  2. THYROID TAB [Concomitant]

REACTIONS (3)
  - BREAST CANCER [None]
  - BREAST MASS [None]
  - MYIASIS [None]
